FAERS Safety Report 11967387 (Version 1)
Quarter: 2016Q1

REPORT INFORMATION
  Report Type: Spontaneous
  Country: US (occurrence: US)
  Receive Date: 20160127
  Receipt Date: 20160127
  Transmission Date: 20160526
  Serious: No
  Sender: FDA-Public Use
  Company Number: GXBR2015US002681

PATIENT
  Sex: Female

DRUGS (1)
  1. NITRO-BID [Suspect]
     Active Substance: NITROGLYCERIN
     Indication: ANAL FISSURE
     Dosage: 2 %, ONCE/SINGLE
     Route: 065
     Dates: start: 20151130

REACTIONS (2)
  - Accidental exposure to product [Recovered/Resolved]
  - Drug dispensing error [Recovered/Resolved]
